FAERS Safety Report 8830805 (Version 8)
Quarter: 2013Q2

REPORT INFORMATION
  Report Type: Spontaneous
  Country: US (occurrence: US)
  Receive Date: 20121008
  Receipt Date: 20130424
  Transmission Date: 20140414
  Serious: Yes (Hospitalization, Other)
  Sender: FDA-Public Use
  Company Number: US-PFIZER INC-2012244223

PATIENT
  Age: 65 Year
  Sex: Male
  Weight: 55.78 kg

DRUGS (6)
  1. SUTENT [Suspect]
     Indication: METASTATIC RENAL CELL CARCINOMA
     Dosage: 50 MG, DAILY, CYCLIC, 42 DAY CYCLE
     Dates: start: 20120905
  2. METFORMIN [Concomitant]
     Dosage: UNK
  3. LISINOPRIL [Concomitant]
     Dosage: UNK
  4. AMLODIPINE [Concomitant]
     Dosage: UNK
  5. GAS-X [Concomitant]
     Dosage: UNK
  6. PERCOCET [Concomitant]
     Dosage: UNK

REACTIONS (21)
  - Rectal haemorrhage [Recovered/Resolved]
  - Diverticulum [Unknown]
  - Tooth infection [Unknown]
  - Post procedural haemorrhage [Unknown]
  - Haemoglobin decreased [Unknown]
  - Hypothyroidism [Recovering/Resolving]
  - Platelet count decreased [Unknown]
  - White blood cell count decreased [Recovered/Resolved]
  - Depression [Unknown]
  - Fatigue [Recovered/Resolved]
  - Asthenia [Not Recovered/Not Resolved]
  - Pain [Unknown]
  - Oropharyngeal pain [Recovered/Resolved]
  - Back disorder [Unknown]
  - Abdominal pain lower [Unknown]
  - Abdominal pain upper [Unknown]
  - Flatulence [Unknown]
  - Disease progression [Unknown]
  - Metastatic renal cell carcinoma [Unknown]
  - Constipation [Unknown]
  - Faeces hard [Unknown]
